FAERS Safety Report 17308476 (Version 1)
Quarter: 2020Q1

REPORT INFORMATION
  Report Type: Spontaneous
  Country: US (occurrence: US)
  Receive Date: 20200123
  Receipt Date: 20200123
  Transmission Date: 20200409
  Serious: No
  Sender: FDA-Public Use
  Company Number: US-SA-2020SA015034

PATIENT
  Age: 75 Year
  Sex: Female

DRUGS (13)
  1. ATENOLOL. [Concomitant]
     Active Substance: ATENOLOL
  2. LEVOTHYROXINE. [Concomitant]
     Active Substance: LEVOTHYROXINE
  3. DUPIXENT [Suspect]
     Active Substance: DUPILUMAB
     Indication: DERMATITIS ATOPIC
     Dosage: 200 MG, QOW
     Route: 058
     Dates: start: 20191114
  4. DUPIXENT [Suspect]
     Active Substance: DUPILUMAB
     Indication: ECZEMA
  5. SERTRALINE [Concomitant]
     Active Substance: SERTRALINE HYDROCHLORIDE
  6. VITAMINS NOS [Concomitant]
     Active Substance: VITAMINS
  7. TURMERIC CURCUMIN [CURCUMA LONGA] [Concomitant]
  8. FISH OIL [Concomitant]
     Active Substance: FISH OIL
  9. MELATONIN [Concomitant]
     Active Substance: MELATONIN
  10. OMEPRAZOLE. [Concomitant]
     Active Substance: OMEPRAZOLE
  11. BIOTIN [Concomitant]
     Active Substance: BIOTIN
  12. HYDROXYZINE [Concomitant]
     Active Substance: HYDROXYZINE HYDROCHLORIDE
  13. PROPRANOLOL [Concomitant]
     Active Substance: PROPRANOLOL HYDROCHLORIDE

REACTIONS (5)
  - Headache [Unknown]
  - Therapeutic response decreased [Unknown]
  - Pruritus [Unknown]
  - Condition aggravated [Unknown]
  - Product use issue [Unknown]

NARRATIVE: CASE EVENT DATE: 20191114
